FAERS Safety Report 6713660-7 (Version None)
Quarter: 2010Q2

REPORT INFORMATION
  Report Type: 
  Country: None (occurrence: None)
  Receive Date: 20100506
  Receipt Date: 20100427
  Transmission Date: 20101027
  Serious: Yes (Death, Other)
  Sender: FDA-Public Use
  Company Number: B0651452A

PATIENT
  Sex: Male

DRUGS (6)
  1. ZIDOVUDINE [Suspect]
     Indication: HIV INFECTION
     Dosage: 1.5MGK TWICE PER DAY
     Route: 042
  2. LAMIVUDINE-HIV [Suspect]
     Indication: HIV INFECTION
     Dosage: 2MGK TWICE PER DAY
     Route: 048
  3. TPN ELECTROLYTES IN PLASTIC CONTAINER [Concomitant]
  4. AMPICILLIN AND SULBACTAM [Concomitant]
  5. CLARITHROMYCIN [Concomitant]
  6. AMIKACIN [Concomitant]

REACTIONS (15)
  - ABDOMINAL DISTENSION [None]
  - APNOEA [None]
  - BILE OUTPUT ABNORMAL [None]
  - CONDITION AGGRAVATED [None]
  - ENDOTRACHEAL INTUBATION [None]
  - GASTROINTESTINAL HYPOMOTILITY [None]
  - GASTROINTESTINAL MOTILITY DISORDER [None]
  - HYPERGLYCAEMIA [None]
  - ILEAL PERFORATION [None]
  - ILEECTOMY [None]
  - ILEOSTOMY [None]
  - MECHANICAL VENTILATION [None]
  - METABOLIC ACIDOSIS [None]
  - NECROTISING COLITIS [None]
  - PNEUMOPERITONEUM [None]
